FAERS Safety Report 6740995-4 (Version None)
Quarter: 2010Q2

REPORT INFORMATION
  Report Type: 
  Country: None (occurrence: None)
  Receive Date: 20100526
  Receipt Date: 20100517
  Transmission Date: 20101027
  Serious: No
  Sender: FDA-Public Use
  Company Number: 2009BI025894

PATIENT
  Age: 46 Year
  Sex: Female

DRUGS (1)
  1. TYSABRI [Suspect]
     Indication: MULTIPLE SCLEROSIS
     Route: 042
     Dates: start: 20080320

REACTIONS (7)
  - ANXIETY [None]
  - BIPOLAR DISORDER [None]
  - CONFUSIONAL STATE [None]
  - DEPRESSION [None]
  - MALAISE [None]
  - MEMORY IMPAIRMENT [None]
  - SENSATION OF HEAVINESS [None]
